FAERS Safety Report 4418263-5 (Version None)
Quarter: 2004Q3

REPORT INFORMATION
  Report Type: 
  Country: None (occurrence: None)
  Receive Date: 20040809
  Receipt Date: 20040122
  Transmission Date: 20050211
  Serious: No
  Sender: FDA-Public Use
  Company Number: US-GLAXOSMITHKLINE-A0494679A

PATIENT
  Sex: Male

DRUGS (3)
  1. PAXIL CR [Suspect]
     Indication: ILL-DEFINED DISORDER
     Dosage: 12.5MG PER DAY
     Route: 048
     Dates: start: 20031201
  2. PAXIL [Suspect]
     Indication: ILL-DEFINED DISORDER
     Route: 048
     Dates: start: 19990101, end: 19990101
  3. ANTIVIRAL [Concomitant]

REACTIONS (5)
  - AGGRESSION [None]
  - FLUSHING [None]
  - HYPERSENSITIVITY [None]
  - PSYCHOMOTOR HYPERACTIVITY [None]
  - SLEEP DISORDER [None]
